FAERS Safety Report 7022896-X (Version None)
Quarter: 2010Q3

REPORT INFORMATION
  Report Type: 
  Country: None (occurrence: None)
  Receive Date: 20100916
  Receipt Date: 20100713
  Transmission Date: 20110219
  Serious: No
  Sender: FDA-Public Use
  Company Number: DKLU1063602

PATIENT
  Age: 1 Year
  Sex: Female

DRUGS (1)
  1. SABRIL [Suspect]
     Indication: INFANTILE SPASMS
     Dosage: 500 MG MILLIGRAM (S), 2 IN 1 D, ORAL
     Route: 048
     Dates: start: 20100414, end: 20100101

REACTIONS (1)
  - DRUG INEFFECTIVE [None]
